FAERS Safety Report 10798573 (Version 1)
Quarter: 2015Q1

REPORT INFORMATION
  Report Type: Spontaneous
  Country: CN (occurrence: CN)
  Receive Date: 20150216
  Receipt Date: 20150216
  Transmission Date: 20150721
  Serious: Yes (Other)
  Sender: FDA-Public Use
  Company Number: CN-GLAXOSMITHKLINE INC.-CN2015GSK013510

PATIENT
  Sex: Male

DRUGS (2)
  1. SERETIDE [Suspect]
     Active Substance: FLUTICASONE FUROATE\SALMETEROL XINAFOATE
     Indication: ASTHMA
     Dosage: UNK
     Dates: start: 2012
  2. SERETIDE [Suspect]
     Active Substance: FLUTICASONE FUROATE\SALMETEROL XINAFOATE
     Dosage: UNK
     Route: 055
     Dates: start: 2011

REACTIONS (7)
  - Product quality issue [Unknown]
  - Drug ineffective [Unknown]
  - Cardiac disorder [Unknown]
  - Asthma [Unknown]
  - Cough [Unknown]
  - Myocardial infarction [Unknown]
  - Dyspnoea [Unknown]
